FAERS Safety Report 4850041-5 (Version None)
Quarter: 2005Q4

REPORT INFORMATION
  Report Type: 
  Country: None (occurrence: None)
  Receive Date: 20051102
  Receipt Date: 20050720
  Transmission Date: 20060501
  Serious: No
  Sender: FDA-Public Use
  Company Number: 200511429BWH

PATIENT
  Sex: Male

DRUGS (1)
  1. LEVITRA [Suspect]
     Dosage: 20 MG, TOTAL DAILY, ORAL
     Route: 048

REACTIONS (1)
  - PAINFUL ERECTION [None]
